FAERS Safety Report 7363530-9 (Version None)
Quarter: 2011Q1

REPORT INFORMATION
  Report Type: 
  Country: None (occurrence: None)
  Receive Date: 20110321
  Receipt Date: 20110315
  Transmission Date: 20110831
  Serious: Yes (Hospitalization, Other)
  Sender: FDA-Public Use
  Company Number: US-JNJFOC-20100702424

PATIENT
  Sex: Male

DRUGS (1)
  1. LEVAQUIN [Suspect]
     Indication: BRONCHITIS
     Route: 048

REACTIONS (5)
  - TENDON RUPTURE [None]
  - ASTHENIA [None]
  - ROTATOR CUFF SYNDROME [None]
  - PERONEAL NERVE PALSY [None]
  - MALAISE [None]
